FAERS Safety Report 24267207 (Version 1)
Quarter: 2024Q3

REPORT INFORMATION
  Report Type: Spontaneous
  Country: GB (occurrence: GB)
  Receive Date: 20240830
  Receipt Date: 20240830
  Transmission Date: 20241016
  Serious: Yes (Hospitalization)
  Sender: AMGEN
  Company Number: GB-AMGEN-GBRSP2024169754

PATIENT
  Sex: Female

DRUGS (1)
  1. ARANESP [Suspect]
     Active Substance: DARBEPOETIN ALFA
     Indication: Transplant
     Dosage: 40 MICROGRAM, Q4WK (40MCG/0.4ML)
     Route: 058

REACTIONS (3)
  - Renal transplant [Unknown]
  - Complications of transplanted kidney [Unknown]
  - Off label use [Unknown]
